FAERS Safety Report 5367185-4 (Version None)
Quarter: 2007Q2

REPORT INFORMATION
  Report Type: 
  Country: None (occurrence: None)
  Receive Date: 20070622
  Receipt Date: 20070613
  Transmission Date: 20071010
  Serious: Yes (Hospitalization)
  Sender: FDA-Public Use
  Company Number: AR-ASTRAZENECA-2007UW13381

PATIENT
  Age: 26481 Day
  Sex: Female

DRUGS (7)
  1. SEROQUEL [Suspect]
     Indication: MAJOR DEPRESSION
     Route: 048
  2. ZENTIUS [Concomitant]
     Indication: MAJOR DEPRESSION
     Route: 048
     Dates: end: 20070502
  3. AKINETON [Concomitant]
     Indication: EXTRAPYRAMIDAL DISORDER
     Route: 048
     Dates: end: 20070416
  4. AKINETON [Concomitant]
     Route: 048
     Dates: start: 20070417, end: 20070423
  5. RIATUL [Concomitant]
     Indication: MAJOR DEPRESSION
     Route: 048
     Dates: end: 20070416
  6. RIATUL [Concomitant]
     Route: 048
     Dates: start: 20070417, end: 20070423
  7. CLONAGIN [Concomitant]
     Indication: MAJOR DEPRESSION
     Route: 048
     Dates: end: 20070423

REACTIONS (1)
  - DEPRESSION [None]
